FAERS Safety Report 4394670-4 (Version None)
Quarter: 2004Q3

REPORT INFORMATION
  Report Type: 
  Country: None (occurrence: None)
  Receive Date: 20040712
  Receipt Date: 20040701
  Transmission Date: 20050211
  Serious: Yes (Hospitalization)
  Sender: FDA-Public Use
  Company Number: JP-MERCK-0407USA00424

PATIENT
  Age: 71 Year
  Sex: Male
  Weight: 51 kg

DRUGS (11)
  1. [THERAPY UNSPECIFIED] [Suspect]
     Indication: CHOLELITHIASIS
     Route: 048
     Dates: start: 20000301, end: 20040510
  2. UNASYN [Concomitant]
     Indication: PNEUMONIA
     Route: 042
     Dates: start: 20040417, end: 20040503
  3. BISOLVON [Suspect]
     Indication: ASTHMA
     Route: 048
     Dates: start: 20040101, end: 20040510
  4. CAMOSTAT MESYLATE [Suspect]
     Indication: CHOLELITHIASIS
     Route: 048
     Dates: start: 20000201, end: 20040510
  5. TIENAM [Concomitant]
     Indication: PNEUMONIA
     Route: 042
     Dates: start: 20040417, end: 20040503
  6. CIMETIDINE [Suspect]
     Indication: GASTRIC ULCER
     Route: 048
     Dates: start: 20030201, end: 20040510
  7. CLARITHROMYCIN [Suspect]
     Indication: PNEUMONIA
     Route: 048
     Dates: start: 20040503, end: 20040510
  8. SINGULAIR [Suspect]
     Indication: ASTHMA
     Route: 048
     Dates: start: 20040101, end: 20040510
  9. FORIT [Suspect]
     Indication: SCHIZOPHRENIA
     Route: 048
  10. THEO-DUR [Suspect]
     Indication: ASTHMA
     Route: 048
     Dates: start: 20040101, end: 20040510
  11. URSO [Suspect]
     Indication: CHOLELITHIASIS
     Route: 048
     Dates: start: 20000201, end: 20040510

REACTIONS (5)
  - ABDOMINAL PAIN [None]
  - ANOREXIA [None]
  - CHEST PAIN [None]
  - HAEMOLYTIC ANAEMIA [None]
  - PNEUMONIA [None]
